FAERS Safety Report 6219475-0 (Version None)
Quarter: 2009Q2

REPORT INFORMATION
  Report Type: 
  Country: None (occurrence: None)
  Receive Date: 20090609
  Receipt Date: 20090529
  Transmission Date: 20091009
  Serious: Yes (Hospitalization)
  Sender: FDA-Public Use
  Company Number: PHEH2009US05532

PATIENT
  Sex: Female

DRUGS (1)
  1. RECLAST [Suspect]
     Indication: OSTEOPOROSIS
     Route: 042

REACTIONS (5)
  - DIZZINESS [None]
  - HEAD INJURY [None]
  - INFLUENZA LIKE ILLNESS [None]
  - PYREXIA [None]
  - SYNCOPE [None]
